FAERS Safety Report 4319332-0 (Version None)
Quarter: 2004Q1

REPORT INFORMATION
  Report Type: 
  Country: None (occurrence: None)
  Receive Date: 20040316
  Receipt Date: 20040302
  Transmission Date: 20041129
  Serious: Yes (Death, Hospitalization)
  Sender: FDA-Public Use
  Company Number: 2004202022TR

PATIENT
  Age: 75 Year
  Sex: Male

DRUGS (4)
  1. BIRVAC (LAMIVUDINE) CAPSULE [Suspect]
     Indication: LIVER FUNCTION TEST ABNORMAL
     Dosage: 100 MG
  2. ALDACTONE [Suspect]
     Dosage: 100 MG, ORAL
     Route: 048
  3. FUROSEMIDE [Suspect]
     Dosage: 40 MG
  4. DIGOXIN [Concomitant]

REACTIONS (3)
  - ILEUS [None]
  - MULTI-ORGAN FAILURE [None]
  - PANCREATITIS ACUTE [None]
